FAERS Safety Report 7193525-X (Version None)
Quarter: 2010Q4

REPORT INFORMATION
  Report Type: 
  Country: None (occurrence: None)
  Receive Date: 20101223
  Receipt Date: 20100817
  Transmission Date: 20110411
  Serious: Yes (Hospitalization, Other)
  Sender: FDA-Public Use
  Company Number: US-BAYER-200937061NA

PATIENT
  Sex: Female
  Weight: 75 kg

DRUGS (3)
  1. YAZ [Suspect]
     Indication: PREMENSTRUAL SYNDROME
     Dosage: UNK UNK, QD
     Route: 048
     Dates: start: 20061101, end: 20070809
  2. YASMIN [Suspect]
     Dosage: UNK UNK, UNK
     Route: 065
     Dates: start: 20080626, end: 20080701
  3. YASMIN [Suspect]
     Dosage: UNK UNK, UNK
     Route: 065
     Dates: start: 20080723, end: 20090306

REACTIONS (4)
  - HYPERTENSION [None]
  - INJURY [None]
  - IRON DEFICIENCY ANAEMIA [None]
  - PULMONARY EMBOLISM [None]
